FAERS Safety Report 23808349 (Version 1)
Quarter: 2024Q2

REPORT INFORMATION
  Report Type: Spontaneous
  Country: US (occurrence: None)
  Receive Date: 20240501
  Receipt Date: 20240501
  Transmission Date: 20240715
  Serious: Yes (Hospitalization)
  Sender: FDA-Public Use
  Company Number: None

PATIENT
  Age: 35 Year
  Sex: Female

DRUGS (4)
  1. DEXAMETHASONE [Suspect]
     Active Substance: DEXAMETHASONE
     Dosage: FREQUENCY : WEEKLY;?
  2. DARZALEX [Suspect]
     Active Substance: DARATUMUMAB
  3. LENALIDOMIDE [Suspect]
     Active Substance: LENALIDOMIDE
     Dosage: FREQUENCY : DAILY;?
  4. KYPROLIS [Suspect]
     Active Substance: CARFILZOMIB

REACTIONS (4)
  - Tumour lysis syndrome [None]
  - Discomfort [None]
  - Acute kidney injury [None]
  - Dialysis [None]
